FAERS Safety Report 9099674 (Version 1)
Quarter: 2013Q1

REPORT INFORMATION
  Report Type: Report from Study
  Country: US (occurrence: US)
  Receive Date: 20130214
  Receipt Date: 20130214
  Transmission Date: 20140127
  Serious: Yes (Hospitalization)
  Sender: FDA-Public Use
  Company Number: US-ROCHE-1187089

PATIENT
  Sex: Male

DRUGS (5)
  1. RITUXAN [Suspect]
     Indication: GRANULOMATOSIS WITH POLYANGIITIS
     Dosage: Q1WK X 4Q6
     Route: 042
     Dates: start: 201209
  2. WARFINE [Concomitant]
     Indication: THROMBOSIS
     Route: 048
  3. PREDNISONE [Concomitant]
     Indication: GRANULOMATOSIS WITH POLYANGIITIS
     Route: 048
  4. AZATHIOPRINE [Concomitant]
     Route: 048
  5. LOPRESSOR [Concomitant]
     Indication: HYPERTENSION
     Route: 048

REACTIONS (7)
  - Blood sodium decreased [Unknown]
  - Renal impairment [Unknown]
  - Joint swelling [Unknown]
  - Epistaxis [Not Recovered/Not Resolved]
  - Local swelling [Unknown]
  - Musculoskeletal pain [Unknown]
  - Fall [Unknown]
